FAERS Safety Report 9395216 (Version 1)
Quarter: 2013Q3

REPORT INFORMATION
  Report Type: Spontaneous
  Country: US (occurrence: US)
  Receive Date: 20130711
  Receipt Date: 20130711
  Transmission Date: 20140515
  Serious: Yes (Other)
  Sender: FDA-Public Use
  Company Number: US-ASTELLAS-2013US004278

PATIENT
  Age: 69 Year
  Sex: Female

DRUGS (7)
  1. MYRBETRIQ [Suspect]
     Indication: INCONTINENCE
     Dosage: 50 MG, UID/QD
     Route: 065
     Dates: start: 20130410
  2. MYRBETRIQ [Suspect]
     Indication: HYPERTONIC BLADDER
  3. LOSARTAN HCT [Concomitant]
     Indication: PRODUCT USED FOR UNKNOWN INDICATION
     Dosage: 100/12.5 MG
     Route: 065
  4. LOSARTAN HCT [Concomitant]
     Dosage: 12.5 MG, UID/QD
     Route: 065
  5. OMEPRAZOL                          /00661201/ [Concomitant]
     Indication: PRODUCT USED FOR UNKNOWN INDICATION
     Dosage: 40 MG, UNKNOWN/D
     Route: 065
  6. METOPROLOL TARTRATE [Concomitant]
     Indication: PRODUCT USED FOR UNKNOWN INDICATION
     Dosage: 25 MG, UNKNOWN/D
     Route: 065
  7. KLOR-CON M10 [Concomitant]
     Indication: PRODUCT USED FOR UNKNOWN INDICATION
     Dosage: UNK
     Route: 065

REACTIONS (2)
  - Incorrect dose administered [Unknown]
  - Blood pressure increased [Unknown]
